FAERS Safety Report 6277033-6 (Version None)
Quarter: 2009Q3

REPORT INFORMATION
  Report Type: 
  Country: None (occurrence: None)
  Receive Date: 20090722
  Receipt Date: 20081201
  Transmission Date: 20100115
  Serious: No
  Sender: FDA-Public Use
  Company Number: US-BRISTOL-MYERS SQUIBB COMPANY-14424808

PATIENT
  Age: 63 Year
  Sex: Male
  Weight: 91 kg

DRUGS (5)
  1. WARFARIN SODIUM [Suspect]
     Indication: THROMBOSIS
     Dates: start: 20081017
  2. METOPROLOL SUCCINATE [Concomitant]
  3. FINASTERIDE [Concomitant]
  4. DOXAZOSIN MESYLATE [Concomitant]
  5. OMEPRAZOLE [Concomitant]

REACTIONS (1)
  - RASH MACULAR [None]
